FAERS Safety Report 9380984 (Version 1)
Quarter: 2013Q3

REPORT INFORMATION
  Report Type: Report from Study
  Country: US (occurrence: US)
  Receive Date: 20130703
  Receipt Date: 20130703
  Transmission Date: 20140515
  Serious: Yes (Other)
  Sender: FDA-Public Use
  Company Number: US-ROCHE-1242691

PATIENT
  Age: 60 Year
  Sex: Male

DRUGS (7)
  1. MYCOPHENOLATE MOFETIL [Suspect]
     Indication: IMMUNOSUPPRESSION
     Route: 065
  2. PREDNISONE [Suspect]
     Indication: IMMUNOSUPPRESSION
     Route: 065
  3. CYCLOSPORINE [Suspect]
     Indication: IMMUNOSUPPRESSION
     Dosage: CUMULATIVE DOSE 330.7G (175MG/DAY FOR 63 MONTHS
     Route: 065
  4. CYCLOPHOSPHAMIDE [Concomitant]
  5. CYTARABINE [Concomitant]
  6. METHOTREXATE [Concomitant]
  7. 6-MERCAPTOPURINE [Concomitant]

REACTIONS (1)
  - Myelodysplastic syndrome [Unknown]
